FAERS Safety Report 24716530 (Version 1)
Quarter: 2024Q4

REPORT INFORMATION
  Report Type: Spontaneous
  Country: JP (occurrence: JP)
  Receive Date: 20241210
  Receipt Date: 20241210
  Transmission Date: 20250115
  Serious: Yes (Hospitalization)
  Sender: ACCORD
  Company Number: JP-Accord-459477

PATIENT
  Age: 61 Year
  Sex: Female

DRUGS (4)
  1. OLMESARTAN MEDOXOMIL [Suspect]
     Active Substance: OLMESARTAN MEDOXOMIL
     Indication: Hypertension
     Route: 048
  2. URSODEOXYCHOL [Concomitant]
  3. VONOPRAZAN [Concomitant]
     Active Substance: VONOPRAZAN
  4. CALCIUM POLYCARBOPHIL [Concomitant]
     Active Substance: CALCIUM POLYCARBOPHIL

REACTIONS (2)
  - Sprue-like enteropathy [Recovering/Resolving]
  - Gastritis [Recovering/Resolving]
